FAERS Safety Report 20175124 (Version 1)
Quarter: 2021Q4

REPORT INFORMATION
  Report Type: Spontaneous
  Country: US (occurrence: None)
  Receive Date: 20211209
  Receipt Date: 20211209
  Transmission Date: 20220303
  Serious: No
  Sender: FDA-Public Use
  Company Number: None

PATIENT
  Age: 76 Year
  Sex: Female
  Weight: 79 kg

DRUGS (3)
  1. INJECTAFER [Suspect]
     Active Substance: FERRIC CARBOXYMALTOSE
     Indication: Follicular lymphoma
     Dosage: FREQUENCY : ONCE;?
     Route: 041
     Dates: start: 20211208, end: 20211208
  2. diphenhydramine 25mg IV [Concomitant]
     Dates: start: 20211208, end: 20211208
  3. Hydrocortisone 100 mg IVP [Concomitant]
     Dates: start: 20211208, end: 20211208

REACTIONS (3)
  - Infusion related reaction [None]
  - Dyspnoea [None]
  - Back pain [None]

NARRATIVE: CASE EVENT DATE: 20211208
